FAERS Safety Report 24555671 (Version 1)
Quarter: 2024Q4

REPORT INFORMATION
  Report Type: Spontaneous
  Country: AU (occurrence: AU)
  Receive Date: 20241028
  Receipt Date: 20241028
  Transmission Date: 20250115
  Serious: Yes (Other)
  Sender: MYLAN
  Company Number: AU-MYLANLABS-2024M1090132

PATIENT
  Sex: Female

DRUGS (1)
  1. CLOZARIL [Suspect]
     Active Substance: CLOZAPINE
     Indication: Schizophrenia
     Dosage: 750 MILLIGRAM
     Route: 048
     Dates: start: 20220919

REACTIONS (2)
  - Chronic myeloid leukaemia [Unknown]
  - Off label use [Unknown]
